FAERS Safety Report 8299665-6 (Version None)
Quarter: 2012Q2

REPORT INFORMATION
  Report Type: 
  Country: None (occurrence: None)
  Receive Date: 20120419
  Receipt Date: 20120413
  Transmission Date: 20120825
  Serious: Yes (Hospitalization, Disabling, Other)
  Sender: FDA-Public Use
  Company Number: US-ELI_LILLY_AND_COMPANY-US201107007646

PATIENT
  Sex: Female

DRUGS (8)
  1. FORTEO [Suspect]
     Indication: OSTEOPOROSIS
     Dosage: 20 UG, QD
  2. FORTEO [Suspect]
     Dosage: 20 UG, QD
  3. ANASTROZOLE [Concomitant]
     Dosage: 1 MG, QD
     Route: 048
  4. FORTEO [Suspect]
     Dosage: 20 UG, QD
  5. CALCIUM W/VITAMIN D NOS [Concomitant]
     Indication: BONE DISORDER
     Dosage: UNK, QD
  6. FORTEO [Suspect]
     Dosage: 20 UG, QD
  7. FORTEO [Suspect]
     Dosage: 20 UG, QD
  8. VITAMIN D [Concomitant]
     Dosage: 50000 IU, WEEKLY (1/W)

REACTIONS (7)
  - MALAISE [None]
  - ASTHENIA [None]
  - BREAST CANCER [None]
  - DISABILITY [None]
  - PAIN [None]
  - ARTHRALGIA [None]
  - FATIGUE [None]
